FAERS Safety Report 12331163 (Version 1)
Quarter: 2016Q2

REPORT INFORMATION
  Report Type: Spontaneous
  Country: US (occurrence: None)
  Receive Date: 20160503
  Receipt Date: 20160503
  Transmission Date: 20160815
  Serious: No
  Sender: FDA-Public Use
  Company Number: None

PATIENT
  Age: 81 Year
  Sex: Male
  Weight: 63.9 kg

DRUGS (1)
  1. OLODATEROL/TIOTROPIUM [Suspect]
     Active Substance: OLODATEROL\TIOTROPIUM BROMIDE
     Indication: CHRONIC OBSTRUCTIVE PULMONARY DISEASE
     Dosage: 5/5 UG EVERYDAY INHALE
     Route: 055
     Dates: start: 20160206, end: 20160411

REACTIONS (2)
  - Myalgia [None]
  - Dizziness [None]

NARRATIVE: CASE EVENT DATE: 20160411
